FAERS Safety Report 25440210 (Version 2)
Quarter: 2025Q2

REPORT INFORMATION
  Report Type: Spontaneous
  Country: US (occurrence: US)
  Receive Date: 20250616
  Receipt Date: 20250617
  Transmission Date: 20250716
  Serious: Yes (Hospitalization)
  Sender: PFIZER
  Company Number: US-PFIZER INC-202500001122

PATIENT
  Age: 71 Year
  Sex: Female

DRUGS (12)
  1. IBRANCE [Suspect]
     Active Substance: PALBOCICLIB
     Route: 048
     Dates: start: 20220420
  2. IBRANCE [Suspect]
     Active Substance: PALBOCICLIB
     Route: 048
     Dates: start: 20220930
  3. CELEBREX [Concomitant]
     Active Substance: CELECOXIB
  4. FUROSEMIDE [Concomitant]
     Active Substance: FUROSEMIDE
  5. LIDOCAINE [Concomitant]
     Active Substance: LIDOCAINE
  6. TYLENOL 8HR [Concomitant]
     Active Substance: ACETAMINOPHEN
  7. XARELTO [Concomitant]
     Active Substance: RIVAROXABAN
  8. TRAMADOL [Concomitant]
     Active Substance: TRAMADOL
  9. METOCLOPRAMIDE [Concomitant]
     Active Substance: METOCLOPRAMIDE
  10. METOPROLOL TARTRATE [Concomitant]
     Active Substance: METOPROLOL TARTRATE
  11. CELECOXIB [Concomitant]
     Active Substance: CELECOXIB
  12. TYLENOL [Concomitant]
     Active Substance: ACETAMINOPHEN

REACTIONS (2)
  - Respiratory disorder [Recovered/Resolved]
  - Product dose omission in error [Unknown]

NARRATIVE: CASE EVENT DATE: 20250525
